FAERS Safety Report 4490852-1 (Version None)
Quarter: 2004Q4

REPORT INFORMATION
  Report Type: 
  Country: None (occurrence: None)
  Receive Date: 20041027
  Receipt Date: 20040923
  Transmission Date: 20050328
  Serious: Yes (Hospitalization)
  Sender: FDA-Public Use
  Company Number: 2004IC000877

PATIENT
  Age: 61 Year
  Sex: Male

DRUGS (4)
  1. FLUOROURACIL [Suspect]
     Dosage: 650 MG; DAILY; INTRAVENOUS
     Route: 042
     Dates: start: 20030924, end: 20030925
  2. LEDERFOLINE (GENERIC UNKNOWN) [Suspect]
     Dosage: 325 MG, INTRAVENOUS
     Route: 042
     Dates: start: 20030924, end: 20030925
  3. ONDANSETRON HYDROCHLORIDE [Suspect]
     Dosage: 8 MG; DAILY; INTRAVENOUS
     Route: 042
     Dates: start: 20030924, end: 20030924
  4. ELOXATIN [Suspect]
     Dosage: 160 MG; DAILY; INTRAVENOUS
     Route: 042
     Dates: start: 20030924, end: 20030924

REACTIONS (4)
  - DIZZINESS [None]
  - PRURITUS [None]
  - RASH ERYTHEMATOUS [None]
  - TREMOR [None]
